FAERS Safety Report 21000570 (Version 1)
Quarter: 2022Q2

REPORT INFORMATION
  Report Type: Spontaneous
  Country: RO (occurrence: RO)
  Receive Date: 20220623
  Receipt Date: 20220623
  Transmission Date: 20220720
  Serious: Yes (Other)
  Sender: FDA-Public Use
  Company Number: RO-009507513-2206ROU006095

PATIENT
  Age: 48 Year
  Sex: Female

DRUGS (1)
  1. PEMBROLIZUMAB [Suspect]
     Active Substance: PEMBROLIZUMAB
     Indication: Malignant melanoma stage IV
     Dosage: 200 MILLIGRAM, Q3W

REACTIONS (22)
  - Hypothyroidism [Unknown]
  - Autoimmune colitis [Unknown]
  - Liver injury [Unknown]
  - Leukopenia [Unknown]
  - Neutropenia [Unknown]
  - Skin toxicity [Unknown]
  - Abdominal pain upper [Not Recovered/Not Resolved]
  - Abdominal pain [Not Recovered/Not Resolved]
  - Back pain [Unknown]
  - Dry mouth [Recovering/Resolving]
  - Paraesthesia [Recovered/Resolved]
  - Coordination abnormal [Recovered/Resolved]
  - Diarrhoea [Unknown]
  - Hypochromic anaemia [Unknown]
  - Rash pruritic [Unknown]
  - Blood corticotrophin decreased [Unknown]
  - Pallor [Unknown]
  - Hilar lymphadenopathy [Unknown]
  - Lymphadenopathy [Unknown]
  - Blood thyroid stimulating hormone decreased [Unknown]
  - Blood iron decreased [Unknown]
  - Inappropriate schedule of product administration [Unknown]

NARRATIVE: CASE EVENT DATE: 20220401
